FAERS Safety Report 16006893 (Version 1)
Quarter: 2019Q1

REPORT INFORMATION
  Report Type: Spontaneous
  Country: CN (occurrence: CN)
  Receive Date: 20190226
  Receipt Date: 20190226
  Transmission Date: 20190418
  Serious: Yes (Life-Threatening)
  Sender: FDA-Public Use
  Company Number: CN-TAKEDA-2019TUS007446

PATIENT
  Age: 54 Year
  Sex: Female

DRUGS (4)
  1. VELCADE [Suspect]
     Active Substance: BORTEZOMIB
     Indication: PLASMA CELL MYELOMA
     Dosage: 1.9 MILLIGRAM, QD
     Route: 058
     Dates: start: 20181012, end: 20181012
  2. CYCLOPHOSPHAMIDE. [Concomitant]
     Active Substance: CYCLOPHOSPHAMIDE
     Indication: PLASMA CELL MYELOMA
     Dosage: 800 MILLIGRAM, QD
     Route: 041
     Dates: start: 20181012, end: 20181012
  3. DEXAMETHASONE SODIUM PHOSPHATE. [Concomitant]
     Active Substance: DEXAMETHASONE SODIUM PHOSPHATE
     Indication: PLASMA CELL MYELOMA
     Dosage: 20 MILLIGRAM, QD
     Route: 041
     Dates: start: 20181012, end: 20181013
  4. LEVOCARNITINE. [Concomitant]
     Active Substance: LEVOCARNITINE
     Indication: CARDIAC DISORDER
     Dosage: 2 GRAM, QD
     Route: 041
     Dates: start: 20181012, end: 20181012

REACTIONS (3)
  - Acute coronary syndrome [Recovering/Resolving]
  - Rash [Recovered/Resolved]
  - Heart injury [Recovering/Resolving]

NARRATIVE: CASE EVENT DATE: 20181013
